FAERS Safety Report 7657253-6 (Version None)
Quarter: 2011Q3

REPORT INFORMATION
  Report Type: 
  Country: None (occurrence: None)
  Receive Date: 20110804
  Receipt Date: 20110722
  Transmission Date: 20111222
  Serious: Yes (Other)
  Sender: FDA-Public Use
  Company Number: AU-PFIZER INC-2011176833

PATIENT

DRUGS (1)
  1. TOLTERODINE TARTRATE [Suspect]

REACTIONS (1)
  - ELECTROCARDIOGRAM ABNORMAL [None]
